FAERS Safety Report 6462524-5 (Version None)
Quarter: 2009Q4

REPORT INFORMATION
  Report Type: 
  Country: None (occurrence: None)
  Receive Date: 20091124
  Receipt Date: 20091118
  Transmission Date: 20100525
  Serious: Yes (Death, Life-Threatening, Other)
  Sender: FDA-Public Use
  Company Number: TPA2009A03643

PATIENT
  Age: 84 Year
  Sex: Male
  Weight: 66.2252 kg

DRUGS (1)
  1. ULORIC [Suspect]
     Indication: GOUT
     Dosage: 80 MG, 1 IN 1 D, PER ORAL
     Route: 048
     Dates: start: 20090316

REACTIONS (3)
  - ARTERIAL OCCLUSIVE DISEASE [None]
  - GANGRENE [None]
  - POST PROCEDURAL MYOCARDIAL INFARCTION [None]
